FAERS Safety Report 6631799-1 (Version None)
Quarter: 2010Q1

REPORT INFORMATION
  Report Type: 
  Country: None (occurrence: None)
  Receive Date: 20100312
  Receipt Date: 20100226
  Transmission Date: 20100710
  Serious: Yes (Other)
  Sender: FDA-Public Use
  Company Number: NL-CELGENEUS-114-21880-10022162

PATIENT
  Sex: Male
  Weight: 77 kg

DRUGS (9)
  1. REVLIMID [Suspect]
     Indication: MULTIPLE MYELOMA
     Route: 048
     Dates: start: 20090323, end: 20090406
  2. CYCLOSPORINE [Concomitant]
     Indication: GRAFT VERSUS HOST DISEASE
     Route: 048
     Dates: start: 20080909
  3. VALACICLOVIR [Concomitant]
     Indication: INFECTION PROPHYLAXIS
     Route: 048
     Dates: start: 20080912
  4. CLEMASTINE FUMARATE [Concomitant]
     Indication: PRURITUS
     Route: 048
     Dates: start: 20090330
  5. METOPROLOL ZOC [Concomitant]
     Indication: HYPERTENSION
     Route: 048
     Dates: start: 20070101
  6. COTRIMOXAZOLE [Concomitant]
     Route: 048
     Dates: start: 20080917
  7. CAPTOPRIL [Concomitant]
     Indication: HYPERTENSION
     Route: 048
     Dates: start: 20070101
  8. PANTOPRAZOLE [Concomitant]
     Route: 048
     Dates: start: 20071001
  9. MMF [Concomitant]
     Indication: DRUG USE FOR UNKNOWN INDICATION
     Route: 065

REACTIONS (5)
  - ACUTE GRAFT VERSUS HOST DISEASE [None]
  - ALANINE AMINOTRANSFERASE INCREASED [None]
  - DECREASED APPETITE [None]
  - METABOLIC DISORDER [None]
  - PRURITUS [None]
